FAERS Safety Report 10219210 (Version 2)
Quarter: 2014Q2

REPORT INFORMATION
  Report Type: Spontaneous
  Country: DE (occurrence: DE)
  Receive Date: 20140605
  Receipt Date: 20140605
  Transmission Date: 20141212
  Serious: Yes (Other)
  Sender: FDA-Public Use
  Company Number: DE-ASTELLAS-2014EU006622

PATIENT
  Age: 66 Year
  Sex: Female

DRUGS (3)
  1. VESIKUR [Suspect]
     Indication: MICTURITION URGENCY
     Route: 048
     Dates: start: 20140509, end: 20140519
  2. MICARDIS [Concomitant]
     Indication: PRODUCT USED FOR UNKNOWN INDICATION
     Route: 065
  3. ESTRIOL [Concomitant]
     Indication: PRODUCT USED FOR UNKNOWN INDICATION
     Route: 065

REACTIONS (1)
  - Gingival bleeding [Recovered/Resolved]
